FAERS Safety Report 12986441 (Version 1)
Quarter: 2016Q4

REPORT INFORMATION
  Report Type: Spontaneous
  Country: US (occurrence: US)
  Receive Date: 20161129
  Receipt Date: 20161129
  Transmission Date: 20170207
  Serious: Yes (Disabling, Other)
  Sender: FDA-Public Use
  Company Number: None

PATIENT
  Age: 39 Year
  Sex: Female
  Weight: 61.2 kg

DRUGS (4)
  1. ESTRATEST [Concomitant]
     Active Substance: ESTROGENS, ESTERIFIED\METHYLTESTOSTERONE
  2. ZYRTEC [Concomitant]
     Active Substance: CETIRIZINE HYDROCHLORIDE
  3. ATIVAN [Concomitant]
     Active Substance: LORAZEPAM
  4. EFFEXOR XR [Suspect]
     Active Substance: VENLAFAXINE HYDROCHLORIDE
     Indication: POST-TRAUMATIC STRESS DISORDER
     Route: 048

REACTIONS (14)
  - Chills [None]
  - Depression [None]
  - Fatigue [None]
  - Pyrexia [None]
  - Hallucination, auditory [None]
  - Aphasia [None]
  - Secondary hypertension [None]
  - Electrocardiogram QT prolonged [None]
  - Hyperhidrosis [None]
  - Vomiting projectile [None]
  - Nausea [None]
  - Sleep disorder [None]
  - Vertigo [None]
  - Sleep terror [None]

NARRATIVE: CASE EVENT DATE: 20160916
